FAERS Safety Report 7947070-1 (Version None)
Quarter: 2011Q4

REPORT INFORMATION
  Report Type: 
  Country: None (occurrence: None)
  Receive Date: 20111129
  Receipt Date: 20110914
  Transmission Date: 20120403
  Serious: No
  Sender: FDA-Public Use
  Company Number: US-ASTRAZENECA-2011SE55485

PATIENT
  Age: 50 Year
  Sex: Female

DRUGS (3)
  1. MULTIPLE NSAID [Concomitant]
  2. IBUPROFEN [Concomitant]
  3. VIMOVO [Suspect]
     Indication: ARTHRITIS
     Route: 048

REACTIONS (3)
  - MEMORY IMPAIRMENT [None]
  - BLISTER [None]
  - RASH [None]
